FAERS Safety Report 11749241 (Version 2)
Quarter: 2015Q4

REPORT INFORMATION
  Report Type: Spontaneous
  Country: JP (occurrence: JP)
  Receive Date: 20151118
  Receipt Date: 20151125
  Transmission Date: 20160304
  Serious: Yes (Hospitalization, Other)
  Sender: FDA-Public Use
  Company Number: JP-SUN PHARMACEUTICAL INDUSTRIES LTD-2015RR-105972

PATIENT

DRUGS (5)
  1. DOCETAXEL. [Suspect]
     Active Substance: DOCETAXEL
     Indication: ENDOMETRIAL STROMAL SARCOMA
     Dosage: 60 MG/BODY SURFACE AREA, DAY 8
     Route: 065
  2. PACLITAXEL. [Suspect]
     Active Substance: PACLITAXEL
     Indication: DISEASE PROGRESSION
     Dosage: 170 MG/M2, 18 CYCLES
     Route: 065
  3. GEMCITABINE [Suspect]
     Active Substance: GEMCITABINE\GEMCITABINE HYDROCHLORIDE
     Indication: ENDOMETRIAL STROMAL SARCOMA
     Dosage: 800 MG/BODY SURFACE AREA, DAY 1 AND 8
     Route: 065
  4. CARBOPLATIN. [Suspect]
     Active Substance: CARBOPLATIN
     Indication: DISEASE PROGRESSION
     Dosage: 18 CYCLES
     Route: 065
  5. LEUPROLIDE [Suspect]
     Active Substance: LEUPROLIDE
     Indication: DISEASE PROGRESSION
     Dosage: 3.75 MG/BODY SURFACE AREA ONCE EVERY 28 DAYS
     Route: 065

REACTIONS (8)
  - Drug resistance [Unknown]
  - Hypoaesthesia [Unknown]
  - Bone marrow failure [Unknown]
  - Alopecia [Unknown]
  - Haemorrhage [Unknown]
  - Neutropenia [Unknown]
  - Shock haemorrhagic [Recovered/Resolved]
  - Condition aggravated [Recovered/Resolved]
